FAERS Safety Report 13597406 (Version 1)
Quarter: 2017Q2

REPORT INFORMATION
  Report Type: Spontaneous
  Country: US (occurrence: US)
  Receive Date: 20170531
  Receipt Date: 20170531
  Transmission Date: 20170830
  Serious: No
  Sender: FDA-Public Use
  Company Number: US-GLAXOSMITHKLINE-US2017078230

PATIENT
  Age: 82 Year
  Sex: Female

DRUGS (2)
  1. CELEBREX [Concomitant]
     Active Substance: CELECOXIB
     Indication: PRODUCT USED FOR UNKNOWN INDICATION
     Dosage: UNK
  2. VOLTAREN [Suspect]
     Active Substance: DICLOFENAC SODIUM
     Indication: JOINT SWELLING
     Dosage: UNK
     Dates: start: 2016, end: 20170523

REACTIONS (7)
  - Drug ineffective for unapproved indication [Unknown]
  - Rash [Unknown]
  - Off label use [Unknown]
  - Application site erythema [Unknown]
  - Application site papules [Unknown]
  - Application site reaction [Unknown]
  - Application site scab [Unknown]

NARRATIVE: CASE EVENT DATE: 20170522
